FAERS Safety Report 20027539 (Version 1)
Quarter: 2021Q4

REPORT INFORMATION
  Report Type: Spontaneous
  Country: US (occurrence: US)
  Receive Date: 20211103
  Receipt Date: 20211103
  Transmission Date: 20220303
  Serious: No
  Sender: FDA-Public Use
  Company Number: US-JNJFOC-20211051890

PATIENT
  Age: 67 Year
  Sex: Female

DRUGS (1)
  1. WOMENS ROGAINE UNSCENTED [Suspect]
     Active Substance: MINOXIDIL
     Indication: Alopecia
     Dosage: DOSE: USED A LITTLE BIT MORE BECAUSE FINISHED THE FIRST TWO, MAYBE IN THREE MONTHS INSTEAD OF FOUR M
     Route: 065
     Dates: start: 202106

REACTIONS (2)
  - Weight increased [Recovering/Resolving]
  - Incorrect dose administered [Unknown]

NARRATIVE: CASE EVENT DATE: 20210601
